FAERS Safety Report 7388433-5 (Version None)
Quarter: 2011Q2

REPORT INFORMATION
  Report Type: 
  Country: None (occurrence: None)
  Receive Date: 20110401
  Receipt Date: 20110330
  Transmission Date: 20111010
  Serious: Yes (Death, Hospitalization)
  Sender: FDA-Public Use
  Company Number: ES-B.I. PHARMACEUTICALS,INC./RIDGEFIELD-2011-ES-00078ES

PATIENT
  Age: 45 Year
  Sex: Female

DRUGS (6)
  1. MICARDIS [Suspect]
     Route: 048
     Dates: start: 20060101, end: 20080905
  2. ALDACTONE [Suspect]
     Indication: HEPATIC CIRRHOSIS
     Route: 048
     Dates: start: 20020101, end: 20080901
  3. SEGURIL [Suspect]
     Indication: HEPATIC CIRRHOSIS
     Route: 048
     Dates: start: 20020101, end: 20080909
  4. OMEPRAZOLE [Concomitant]
     Route: 048
     Dates: end: 20080909
  5. DICLOFENACO [Suspect]
     Indication: PAIN
     Route: 048
     Dates: start: 20080825, end: 20080901
  6. SUMIAL [Concomitant]
     Indication: HEPATIC CIRRHOSIS
     Route: 048
     Dates: end: 20080904

REACTIONS (4)
  - RENAL FAILURE ACUTE [None]
  - HEPATIC CIRRHOSIS [None]
  - HEPATIC ENCEPHALOPATHY [None]
  - DRUG INTERACTION [None]
